FAERS Safety Report 4269703-6 (Version None)
Quarter: 2004Q1

REPORT INFORMATION
  Report Type: 
  Country: None (occurrence: None)
  Receive Date: 20040112
  Receipt Date: 20040105
  Transmission Date: 20041129
  Serious: Yes (Death)
  Sender: FDA-Public Use
  Company Number: 2002-07-1973

PATIENT
  Age: 28 Year
  Sex: Male

DRUGS (7)
  1. ALBUTEROL [Suspect]
     Indication: ASTHMA
     Dosage: INHALATION
     Route: 045
     Dates: start: 19980112
  2. AZMACORT [Concomitant]
  3. SINGULAIR [Concomitant]
  4. BENZONATATE [Concomitant]
  5. PREDNISONE [Concomitant]
  6. AEROBID [Concomitant]
  7. ZITHROMAX [Concomitant]

REACTIONS (2)
  - ASTHMA [None]
  - MOUTH INJURY [None]
